FAERS Safety Report 6058871-1 (Version None)
Quarter: 2009Q1

REPORT INFORMATION
  Report Type: 
  Country: None (occurrence: None)
  Receive Date: 20090128
  Receipt Date: 20090128
  Transmission Date: 20090719
  Serious: Yes (Hospitalization, Other)
  Sender: FDA-Public Use
  Company Number: None

PATIENT
  Age: 40 Year
  Sex: Female

DRUGS (2)
  1. PHENERGAN [Suspect]
     Indication: MIGRAINE
     Dosage: 50 MG ONCE INTRA-ARTERIAL
     Route: 013
     Dates: start: 20081130, end: 20081230
  2. DEMEROL [Concomitant]

REACTIONS (4)
  - BLISTER [None]
  - INCORRECT ROUTE OF DRUG ADMINISTRATION [None]
  - OEDEMA PERIPHERAL [None]
  - PERIPHERAL COLDNESS [None]
